FAERS Safety Report 18145295 (Version 2)
Quarter: 2020Q3

REPORT INFORMATION
  Report Type: Spontaneous
  Country: US (occurrence: US)
  Receive Date: 20200813
  Receipt Date: 20200908
  Transmission Date: 20201103
  Serious: Yes (Death, Other)
  Sender: FDA-Public Use
  Company Number: US-B.I. PHARMACEUTICALS,INC./RIDGEFIELD-2020-US-041219

PATIENT
  Age: 71 Year
  Sex: Male

DRUGS (1)
  1. JARDIANCE [Suspect]
     Active Substance: EMPAGLIFLOZIN
     Indication: TYPE 2 DIABETES MELLITUS
     Dosage: 25 MG QD
     Dates: start: 2018

REACTIONS (7)
  - Vertigo [Unknown]
  - Back pain [Unknown]
  - Neck pain [Unknown]
  - Gastrointestinal haemorrhage [Fatal]
  - Hypovolaemic shock [Fatal]
  - Abdominal distension [Unknown]
  - Anaemia [Fatal]

NARRATIVE: CASE EVENT DATE: 2020
